FAERS Safety Report 15332609 (Version 10)
Quarter: 2019Q2

REPORT INFORMATION
  Report Type: Spontaneous
  Country: CA (occurrence: CA)
  Receive Date: 20180830
  Receipt Date: 20190505
  Transmission Date: 20190711
  Serious: Yes (Hospitalization, Other)
  Sender: FDA-Public Use
  Company Number: CA-CELLTRION INC.-2018CA021640

PATIENT

DRUGS (21)
  1. INFLECTRA [Suspect]
     Active Substance: INFLIXIMAB-DYYB
     Dosage: 400 MG, EVERY 0, 2, 6 WEEKS THEN EVERY 8 WEEKS
     Route: 042
     Dates: start: 20181026
  2. INFLECTRA [Suspect]
     Active Substance: INFLIXIMAB-DYYB
     Dosage: 400 MG, EVERY 0, 2, 6 WEEKS THEN EVERY 8 WEEKS
     Route: 042
     Dates: start: 20181109
  3. LORAZEPAM. [Concomitant]
     Active Substance: LORAZEPAM
     Dosage: UNK
  4. METRONIDAZOLE. [Concomitant]
     Active Substance: METRONIDAZOLE
     Indication: POUCHITIS
     Dosage: UNK
  5. INFLECTRA [Suspect]
     Active Substance: INFLIXIMAB-DYYB
     Dosage: 400 MG, EVERY 0, 2, 6 WEEKS THEN EVERY 8 WEEKS
     Route: 042
     Dates: start: 20181109
  6. INFLECTRA [Suspect]
     Active Substance: INFLIXIMAB-DYYB
     Dosage: 400 MG, EVERY 0, 2, 6 WEEKS THEN EVERY 8 WEEKS
     Route: 042
     Dates: start: 20181109
  7. INFLECTRA [Suspect]
     Active Substance: INFLIXIMAB-DYYB
     Dosage: 400MG, EVERY 2WEEKS THEN EVERY 4 WEEKS
     Route: 042
     Dates: start: 20190318
  8. ENTOCORT [Concomitant]
     Active Substance: BUDESONIDE
     Dosage: UNK
  9. CIPROFLOXACIN. [Concomitant]
     Active Substance: CIPROFLOXACIN
     Indication: POUCHITIS
  10. INFLECTRA [Suspect]
     Active Substance: INFLIXIMAB-DYYB
     Dosage: 400 MG, EVERY 0, 2, 6 WEEKS THEN EVERY 8 WEEKS
     Route: 042
     Dates: start: 20190108
  11. FLUOXETINE [Concomitant]
     Active Substance: FLUOXETINE HYDROCHLORIDE
     Dosage: UNK
  12. INFLECTRA [Suspect]
     Active Substance: INFLIXIMAB-DYYB
     Indication: CROHN^S DISEASE
     Dosage: 400 MG, EVERY 0, 2, 6 WEEKS THEN EVERY 8 WEEKS
     Route: 042
     Dates: start: 20180924
  13. INFLECTRA [Suspect]
     Active Substance: INFLIXIMAB-DYYB
     Dosage: 400 MG, EVERY 0, 2, 6 WEEKS THEN EVERY 8 WEEKS
     Route: 042
     Dates: start: 20181109
  14. INFLECTRA [Suspect]
     Active Substance: INFLIXIMAB-DYYB
     Dosage: 400 MG, EVERY 0, 2, 6 WEEKS THEN EVERY 8 WEEKS
     Route: 042
     Dates: start: 20190306
  15. CBD OIL [Concomitant]
     Active Substance: CANNABIDIOL\HERBALS
     Dosage: UNK
  16. METRONIDAZOLE. [Concomitant]
     Active Substance: METRONIDAZOLE
     Indication: PYREXIA
     Dosage: 500 MG, TID
     Dates: start: 20180919
  17. INFLECTRA [Suspect]
     Active Substance: INFLIXIMAB-DYYB
     Dosage: 400 MG, EVERY 0, 2, 6 WEEKS THEN EVERY 8 WEEKS
     Route: 042
     Dates: start: 20181009
  18. DILAUDID [Concomitant]
     Active Substance: HYDROMORPHONE HYDROCHLORIDE
     Indication: PAIN
     Dosage: 1 MG, BID EVERY 12 HOURS AS NEEDED
  19. VACCINE ANTIGRIPAL [Concomitant]
     Active Substance: INFLUENZA VIRUS VACCINE
     Indication: INFLUENZA
     Dosage: UNK UNK, SINGLE
  20. INFLECTRA [Suspect]
     Active Substance: INFLIXIMAB-DYYB
     Dosage: 400 MG, EVERY 0, 2, 6 WEEKS THEN EVERY 8 WEEKS
     Route: 042
     Dates: start: 20190130
  21. CIPROFLOXACIN. [Concomitant]
     Active Substance: CIPROFLOXACIN
     Indication: PYREXIA
     Dosage: 1000 MG, BID
     Dates: start: 20180919

REACTIONS (31)
  - Pyrexia [Not Recovered/Not Resolved]
  - Respiratory tract infection [Unknown]
  - Dysplasia [Unknown]
  - Hordeolum [Unknown]
  - Nervousness [Unknown]
  - Malaise [Unknown]
  - Pruritus generalised [Recovering/Resolving]
  - Product use issue [Not Recovered/Not Resolved]
  - Flushing [Recovered/Resolved]
  - Stress [Unknown]
  - Condition aggravated [Not Recovered/Not Resolved]
  - Eye swelling [Unknown]
  - Eye irritation [Unknown]
  - Eye pruritus [Unknown]
  - Throat irritation [Recovering/Resolving]
  - Drug specific antibody present [Unknown]
  - Hepatic enzyme increased [Unknown]
  - Breast disorder [Unknown]
  - Drug level decreased [Unknown]
  - Drug ineffective [Not Recovered/Not Resolved]
  - Asthma [Unknown]
  - Muscle spasms [Unknown]
  - Urticaria [Recovered/Resolved]
  - Wheezing [Recovered/Resolved]
  - Inflammation [Not Recovered/Not Resolved]
  - Infection [Unknown]
  - Sepsis [Unknown]
  - Pneumonia [Unknown]
  - Fatigue [Unknown]
  - Anxiety [Unknown]
  - Off label use [Unknown]

NARRATIVE: CASE EVENT DATE: 20180927
